FAERS Safety Report 5897656-3 (Version None)
Quarter: 2008Q3

REPORT INFORMATION
  Report Type: 
  Country: None (occurrence: None)
  Receive Date: 20080925
  Receipt Date: 20080915
  Transmission Date: 20090109
  Serious: Yes (Other)
  Sender: FDA-Public Use
  Company Number: US-ROCHE-449746

PATIENT
  Sex: Female

DRUGS (2)
  1. PEGASYS [Suspect]
     Dosage: ROUTE REPORTED AS INJECTABLE.
     Route: 050
     Dates: start: 20060223, end: 20060601
  2. RIBAVIRIN [Suspect]
     Route: 048
     Dates: start: 20060223, end: 20060601

REACTIONS (1)
  - ENDOMETRIAL HYPERTROPHY [None]
